FAERS Safety Report 8066639-X (Version None)
Quarter: 2012Q1

REPORT INFORMATION
  Report Type: 
  Country: None (occurrence: None)
  Receive Date: 20120124
  Receipt Date: 20120118
  Transmission Date: 20120608
  Serious: Yes (Hospitalization, Other)
  Sender: FDA-Public Use
  Company Number: PT-PFIZER INC-2011288229

PATIENT
  Age: 40 Year
  Sex: Female
  Weight: 68 kg

DRUGS (1)
  1. CELECOXIB [Suspect]
     Indication: MUSCULOSKELETAL PAIN
     Route: 048
     Dates: start: 20111021, end: 20111104

REACTIONS (9)
  - HEPATITIS TOXIC [None]
  - RASH ERYTHEMATOUS [None]
  - RHABDOMYOLYSIS [None]
  - ESCHERICHIA SEPSIS [None]
  - RASH MACULO-PAPULAR [None]
  - MULTI-ORGAN FAILURE [None]
  - RENAL FAILURE ACUTE [None]
  - EXFOLIATIVE RASH [None]
  - RASH PRURITIC [None]
